FAERS Safety Report 8831683 (Version 2)
Quarter: 2013Q1

REPORT INFORMATION
  Report Type: Spontaneous
  Country: US (occurrence: US)
  Receive Date: 20121009
  Receipt Date: 20130109
  Transmission Date: 20140127
  Serious: Yes (Hospitalization, Other)
  Sender: FDA-Public Use
  Company Number: US-BAYER-2012-103912

PATIENT
  Age: 17 Year
  Sex: Female
  Weight: 111.11 kg

DRUGS (5)
  1. YASMIN [Suspect]
     Indication: ACNE
     Dosage: UNK
     Dates: start: 200902, end: 200905
  2. OCELLA [Suspect]
     Indication: ACNE
     Dosage: UNK
     Dates: start: 200902, end: 200905
  3. ANTIBIOTICS [Concomitant]
     Dosage: UNK UNK, PRN
  4. ASTHMA/BREATHING MEDS [Concomitant]
     Dosage: UNK
     Dates: start: 2000
  5. ADVIL [Concomitant]

REACTIONS (8)
  - Pulmonary embolism [None]
  - Deep vein thrombosis [None]
  - Myocardial infarction [None]
  - Cerebrovascular accident [None]
  - Gallbladder disorder [None]
  - Pain [None]
  - Injury [None]
  - Pain [None]
